FAERS Safety Report 6460011-1 (Version None)
Quarter: 2009Q4

REPORT INFORMATION
  Report Type: 
  Country: None (occurrence: None)
  Receive Date: 20091129
  Receipt Date: 20091118
  Transmission Date: 20100525
  Serious: Yes (Other)
  Sender: FDA-Public Use
  Company Number: PHHY2009IT50793

PATIENT
  Sex: Male

DRUGS (3)
  1. EXJADE [Suspect]
     Indication: HAEMOSIDEROSIS
     Dosage: 875 MG, UNK
     Route: 048
     Dates: start: 20040722, end: 20090709
  2. PEGASYS [Suspect]
     Indication: HEPATITIS C
     Dosage: 180 MCG/ WEEK
     Route: 058
     Dates: start: 20081205, end: 20090703
  3. CACIT D3 [Concomitant]
     Dosage: 1 SACHET
     Route: 048
     Dates: start: 20070110

REACTIONS (3)
  - BLOOD BILIRUBIN UNCONJUGATED INCREASED [None]
  - HAEMOGLOBIN DECREASED [None]
  - HAEMOLYTIC ANAEMIA [None]
